FAERS Safety Report 23505137 (Version 2)
Quarter: 2024Q1

REPORT INFORMATION
  Report Type: Spontaneous
  Country: HU (occurrence: HU)
  Receive Date: 20240209
  Receipt Date: 20240213
  Transmission Date: 20240410
  Serious: Yes (Death, Hospitalization, Other)
  Sender: FDA-Public Use
  Company Number: HU-ASTELLAS-2024US002802

PATIENT
  Age: 63 Year
  Sex: Male

DRUGS (2)
  1. XOSPATA [Suspect]
     Active Substance: GILTERITINIB
     Indication: Acute myeloid leukaemia
     Route: 065
     Dates: start: 20220928
  2. XOSPATA [Suspect]
     Active Substance: GILTERITINIB
     Indication: FLT3 gene mutation
     Dosage: UNK UNK, UNKNOWN FREQ, (FOR TWO MORE MONTHS)
     Route: 065

REACTIONS (10)
  - Death [Fatal]
  - Pyrexia [Unknown]
  - Respiratory tract infection [Unknown]
  - Erythema [Unknown]
  - Capillary leak syndrome [Unknown]
  - Tooth abscess [Unknown]
  - PTPN11 gene mutation [Unknown]
  - Leukocytosis [Unknown]
  - Differentiation syndrome [Unknown]
  - Infection [Unknown]
